FAERS Safety Report 9531074 (Version 1)
Quarter: 2013Q3

REPORT INFORMATION
  Report Type: Spontaneous
  Country: US (occurrence: US)
  Receive Date: 20130918
  Receipt Date: 20130918
  Transmission Date: 20140515
  Serious: Yes (Hospitalization)
  Sender: FDA-Public Use
  Company Number: US-BAYER-2013-111978

PATIENT
  Age: 51 Year
  Sex: Female

DRUGS (2)
  1. YAZ [Suspect]
     Indication: MENOPAUSAL SYMPTOMS
     Dosage: UNK
     Dates: start: 2009, end: 2011
  2. YASMIN [Suspect]
     Dosage: UNK
     Dates: start: 2011, end: 2013

REACTIONS (2)
  - Uterine cancer [None]
  - Off label use [None]
